FAERS Safety Report 17520723 (Version 3)
Quarter: 2020Q1

REPORT INFORMATION
  Report Type: Spontaneous
  Country: US (occurrence: US)
  Receive Date: 20200310
  Receipt Date: 20200330
  Transmission Date: 20200409
  Serious: No
  Sender: FDA-Public Use
  Company Number: US-PFIZER INC-2017479756

PATIENT
  Age: 65 Year
  Sex: Female

DRUGS (2)
  1. PREMPRO [Suspect]
     Active Substance: ESTROGENS, CONJUGATED\MEDROXYPROGESTERONE ACETATE
     Indication: MENOPAUSAL SYMPTOMS
     Dosage: 1 DF, 1X/DAY (TABLET 0.625-2.5 MG)
     Route: 048
  2. PREMPRO [Suspect]
     Active Substance: ESTROGENS, CONJUGATED\MEDROXYPROGESTERONE ACETATE
     Indication: MENOPAUSE

REACTIONS (4)
  - Malaise [Unknown]
  - Influenza [Unknown]
  - Nasopharyngitis [Unknown]
  - Hypoacusis [Unknown]

NARRATIVE: CASE EVENT DATE: 202003
